FAERS Safety Report 15004413 (Version 1)
Quarter: 2018Q2

REPORT INFORMATION
  Report Type: Spontaneous
  Country: US (occurrence: US)
  Receive Date: 20180524
  Receipt Date: 20180524
  Transmission Date: 20180711
  Serious: Yes (Other)
  Sender: FDA-Public Use
  Company Number: None

PATIENT
  Age: 3 Year
  Sex: Male
  Weight: 17.1 kg

DRUGS (2)
  1. BANANA BOAT SPORT PERFORMANCE WITH POWERSTAY TECHNOLOGY BROAD SPECTRUM SPF15 [Suspect]
     Active Substance: AVOBENZONE\HOMOSALATE\OCTOCRYLENE
     Indication: PROPHYLAXIS AGAINST SOLAR RADIATION
     Dosage: ?          QUANTITY:170 SPRAY(S);?
     Route: 061
     Dates: start: 20180522, end: 20180522
  2. MULTIVITAMIN [Concomitant]
     Active Substance: VITAMINS

REACTIONS (3)
  - Burns second degree [None]
  - Drug ineffective [None]
  - Application site burn [None]

NARRATIVE: CASE EVENT DATE: 20180523
